FAERS Safety Report 5729766-5 (Version None)
Quarter: 2008Q2

REPORT INFORMATION
  Report Type: 
  Country: None (occurrence: None)
  Receive Date: 20080501
  Receipt Date: 20080416
  Transmission Date: 20081010
  Serious: Yes (Hospitalization)
  Sender: FDA-Public Use
  Company Number: 2008000881

PATIENT
  Age: 55 Year
  Sex: Male

DRUGS (1)
  1. ERLOTINIB (ERLOTINIB HCL) (TABLET) (ERLOTINIB) [Suspect]
     Indication: NON-SMALL CELL LUNG CANCER
     Dosage: 150 MG, QD), ORAL
     Route: 048
     Dates: start: 20080311

REACTIONS (1)
  - PULMONARY EMBOLISM [None]
